FAERS Safety Report 5947664-9 (Version None)
Quarter: 2008Q4

REPORT INFORMATION
  Report Type: 
  Country: None (occurrence: None)
  Receive Date: 20081110
  Receipt Date: 20081028
  Transmission Date: 20090506
  Serious: Yes (Hospitalization, Other)
  Sender: FDA-Public Use
  Company Number: 2008TJ0262

PATIENT
  Age: 51 Year
  Sex: Male

DRUGS (7)
  1. TWINJECT 0.3 [Suspect]
     Indication: ANAPHYLACTIC REACTION
     Dosage: 0.3 MG, PRN, SUBCUTANEOUS/INTRAMUSCULAR
     Route: 058
     Dates: start: 20081026, end: 20081026
  2. EPIVAL [Concomitant]
  3. TEGRETOL [Concomitant]
  4. LIPITOR [Concomitant]
  5. HYDROCHLOROTHIAZIDE [Concomitant]
  6. ALTACE [Concomitant]
  7. LOPRESSOR [Concomitant]

REACTIONS (3)
  - ANAPHYLACTIC SHOCK [None]
  - DEVICE MALFUNCTION [None]
  - PRODUCT QUALITY ISSUE [None]
